FAERS Safety Report 19933680 (Version 2)
Quarter: 2021Q4

REPORT INFORMATION
  Report Type: Spontaneous
  Country: DE (occurrence: DE)
  Receive Date: 20211008
  Receipt Date: 20211013
  Transmission Date: 20220303
  Serious: Yes (Other)
  Sender: FDA-Public Use
  Company Number: DE-AMGEN-DEUSP2021090221

PATIENT
  Age: 52 Year
  Sex: Female

DRUGS (5)
  1. TRASTUZUMAB [Suspect]
     Active Substance: TRASTUZUMAB
     Indication: HER2 positive breast cancer
     Dosage: 6 MICROGRAM/KILOGRAM, Q3WK
     Route: 065
  2. TRASTUZUMAB [Suspect]
     Active Substance: TRASTUZUMAB
     Dosage: 8 MICROGRAM/KILOGRAM
     Route: 065
  3. TRASTUZUMAB [Suspect]
     Active Substance: TRASTUZUMAB
     Dosage: THREE COURSES OF TRASTUZUMAB
  4. PACLITAXEL [Suspect]
     Active Substance: PACLITAXEL
     Indication: HER2 positive breast cancer
     Dosage: 80 MILLIGRAM/SQ. METER, QWK
  5. PACLITAXEL [Suspect]
     Active Substance: PACLITAXEL
     Dosage: SEVEN COURSES OF PACLITAXEL

REACTIONS (4)
  - Ophthalmic herpes simplex [Unknown]
  - Keratitis [Unknown]
  - Neuropathy peripheral [Unknown]
  - Immune-mediated adverse reaction [Unknown]
